FAERS Safety Report 9468862 (Version 3)
Quarter: 2014Q2

REPORT INFORMATION
  Report Type: Spontaneous
  Country: US (occurrence: None)
  Receive Date: 20130816
  Receipt Date: 20140627
  Transmission Date: 20141212
  Serious: Yes (Other)
  Sender: FDA-Public Use
  Company Number: JPI-P-034431

PATIENT
  Age: 22 Year
  Sex: Male

DRUGS (1)
  1. XYREM [Suspect]
     Indication: CATAPLEXY
     Route: 048
     Dates: start: 20120710, end: 201208

REACTIONS (6)
  - Drug intolerance [None]
  - Drug effect decreased [None]
  - Muscular weakness [None]
  - Myalgia [None]
  - Thirst [None]
  - Intentional product misuse [None]
